FAERS Safety Report 4749165-2 (Version None)
Quarter: 2005Q3

REPORT INFORMATION
  Report Type: 
  Country: None (occurrence: None)
  Receive Date: 20050812
  Receipt Date: 20050510
  Transmission Date: 20060218
  Serious: Yes (Other)
  Sender: FDA-Public Use
  Company Number: 398988

PATIENT
  Age: 47 Year
  Sex: Female

DRUGS (2)
  1. PEGASYS [Suspect]
     Indication: DRUG USE FOR UNKNOWN INDICATION
     Dosage: OTHER
     Route: 050
     Dates: start: 20041006, end: 20050509
  2. COPEGUS [Suspect]
     Indication: DRUG USE FOR UNKNOWN INDICATION
     Dosage: ORAL
     Route: 048
     Dates: start: 20041006, end: 20050509

REACTIONS (12)
  - ANOREXIA [None]
  - BODY TEMPERATURE INCREASED [None]
  - DIZZINESS [None]
  - EAR INFECTION [None]
  - FATIGUE [None]
  - HAEMOGLOBIN DECREASED [None]
  - INCREASED TENDENCY TO BRUISE [None]
  - PAIN [None]
  - PLATELET COUNT DECREASED [None]
  - WEIGHT DECREASED [None]
  - WHITE BLOOD CELL COUNT DECREASED [None]
  - WOUND DRAINAGE [None]
